FAERS Safety Report 5049451-5 (Version None)
Quarter: 2006Q2

REPORT INFORMATION
  Report Type: 
  Country: None (occurrence: None)
  Receive Date: 20060613
  Receipt Date: 20060228
  Transmission Date: 20061013
  Serious: No
  Sender: FDA-Public Use
  Company Number: 2005-02463

PATIENT
  Age: 68 Year
  Sex: Female
  Weight: 74.6 kg

DRUGS (11)
  1. VELCADE [Suspect]
     Indication: MULTIPLE MYELOMA
     Dosage: 2.40 MG/M2, IV BOLUS
     Route: 040
     Dates: start: 20050725, end: 20051020
  2. SECTRAL [Concomitant]
  3. PROTONIX [Concomitant]
  4. CARDURA [Concomitant]
  5. FISH OIL (FISH OIL) [Concomitant]
  6. GLUCOSAMINE W/CHONDROITIN SULFATES (ASCORBIC ACID, GLUCOSAMINE SULFATE [Concomitant]
  7. MULTIVITAMINS (ERGOCALCIFEROL, PANTHENOL, NICOTINAMIDE, RIBOFLAVIN, TH [Concomitant]
  8. ANZEMET [Concomitant]
  9. DECADRON [Concomitant]
  10. PROCRIT [Concomitant]
  11. IMITREX [Concomitant]

REACTIONS (1)
  - RASH [None]
